FAERS Safety Report 8025194-0 (Version None)
Quarter: 2012Q1

REPORT INFORMATION
  Report Type: 
  Country: None (occurrence: None)
  Receive Date: 20120105
  Receipt Date: 20111129
  Transmission Date: 20120608
  Serious: Yes (Hospitalization)
  Sender: FDA-Public Use
  Company Number: JP-GLAXOSMITHKLINE-B0766605A

PATIENT
  Sex: Female

DRUGS (6)
  1. LITHIUM CARBONATE [Concomitant]
     Dosage: 600NG PER DAY
     Route: 048
  2. LAMICTAL [Suspect]
     Indication: BIPOLAR DISORDER
     Dosage: 25MG PER DAY
     Route: 048
     Dates: start: 20111024, end: 20111118
  3. MAGMITT [Concomitant]
     Dosage: 990MG PER DAY
     Route: 048
  4. HIRNAMIN [Concomitant]
     Dosage: 10MG PER DAY
     Route: 048
  5. FLUNITRAZEPAM [Concomitant]
     Dosage: 2MG PER DAY
     Route: 048
  6. UNKNOWN DRUG [Concomitant]
     Dosage: 10MG PER DAY
     Route: 048

REACTIONS (4)
  - BLOOD UREA INCREASED [None]
  - DRUG ERUPTION [None]
  - EOSINOPHIL PERCENTAGE INCREASED [None]
  - LYMPHOCYTE PERCENTAGE INCREASED [None]
